FAERS Safety Report 17372859 (Version 4)
Quarter: 2020Q2

REPORT INFORMATION
  Report Type: Report from Study
  Country: CA (occurrence: CA)
  Receive Date: 20200205
  Receipt Date: 20200625
  Transmission Date: 20200713
  Serious: Yes (Hospitalization)
  Sender: FDA-Public Use
  Company Number: CA-PFIZER INC-2020036146

PATIENT
  Age: 57 Year
  Sex: Male
  Weight: 66.2 kg

DRUGS (4)
  1. CYTARABINE. [Suspect]
     Active Substance: CYTARABINE
     Indication: ACUTE MYELOID LEUKAEMIA
     Dosage: 10400 MG, UNK (CONSOLIDATION WITH SINGLE-AGENT CYTARABINE), SOLUTION
     Route: 042
     Dates: start: 20200106, end: 20200110
  2. CYTARABINE. [Suspect]
     Active Substance: CYTARABINE
     Indication: ACUTE MYELOID LEUKAEMIA
     Dosage: 1220 MG, DAILY BY CONTINUOUS INFUSION (INDUCTION), SOLUTION
     Route: 041
     Dates: start: 20191120, end: 20191127
  3. GLASDEGIB [Suspect]
     Active Substance: GLASDEGIB
     Indication: ACUTE MYELOID LEUKAEMIA
     Dosage: ONCE DAILY CONTINUOUS
     Route: 048
     Dates: start: 20191120, end: 20200117
  4. DAUNORUBICIN [Suspect]
     Active Substance: DAUNORUBICIN
     Indication: ACUTE MYELOID LEUKAEMIA
     Dosage: 104 MG, DAILY BY CONTINUOUS INFUSION (INDUCTION), SOLUTION
     Route: 041
     Dates: start: 20191120, end: 20191122

REACTIONS (2)
  - Alpha haemolytic streptococcal infection [Recovered/Resolved]
  - Febrile neutropenia [Recovered/Resolved]

NARRATIVE: CASE EVENT DATE: 20200123
